FAERS Safety Report 12279460 (Version 2)
Quarter: 2016Q2

REPORT INFORMATION
  Report Type: Spontaneous
  Country: US (occurrence: US)
  Receive Date: 20160418
  Receipt Date: 20160620
  Transmission Date: 20160815
  Serious: No
  Sender: FDA-Public Use
  Company Number: US-AMGEN-USASL2016044805

PATIENT
  Age: 70 Year
  Sex: Female

DRUGS (3)
  1. ENBREL [Suspect]
     Active Substance: ETANERCEPT
     Indication: ARTHRITIS
  2. REMICADE [Suspect]
     Active Substance: INFLIXIMAB
     Indication: PRODUCT USED FOR UNKNOWN INDICATION
     Dosage: UNK
     Route: 065
  3. ENBREL [Suspect]
     Active Substance: ETANERCEPT
     Indication: PSORIATIC ARTHROPATHY
     Dosage: UNK, QWK
     Route: 065
     Dates: start: 201103

REACTIONS (8)
  - Injection site erythema [Unknown]
  - Skin striae [Unknown]
  - Hand deformity [Unknown]
  - Rash [Unknown]
  - Injection site discolouration [Not Recovered/Not Resolved]
  - Injection site swelling [Unknown]
  - Injection site warmth [Unknown]
  - Scar [Unknown]

NARRATIVE: CASE EVENT DATE: 2016
